FAERS Safety Report 7923218-X (Version None)
Quarter: 2011Q4

REPORT INFORMATION
  Report Type: 
  Country: None (occurrence: None)
  Receive Date: 20111117
  Receipt Date: 20110131
  Transmission Date: 20120403
  Serious: No
  Sender: FDA-Public Use
  Company Number: US-AMGEN-USASP2011005965

PATIENT
  Age: 46 Year
  Sex: Female

DRUGS (2)
  1. ENBREL [Suspect]
     Indication: RHEUMATOID ARTHRITIS
     Dosage: 50 MG, QWK
     Dates: start: 20110116
  2. METHOTREXATE [Concomitant]
     Dates: start: 20050101

REACTIONS (6)
  - CHEILITIS [None]
  - STOMATITIS [None]
  - DYSURIA [None]
  - DIARRHOEA [None]
  - DIZZINESS [None]
  - POLLAKIURIA [None]
